FAERS Safety Report 5690650-7 (Version None)
Quarter: 2008Q1

REPORT INFORMATION
  Report Type: 
  Country: None (occurrence: None)
  Receive Date: 20080331
  Receipt Date: 20080331
  Transmission Date: 20080703
  Serious: Yes (Other)
  Sender: FDA-Public Use
  Company Number: None

PATIENT
  Sex: Female
  Weight: 81.6475 kg

DRUGS (2)
  1. SINGULAIR [Suspect]
     Indication: ASTHMA
     Dosage: 10 MG. DAILY
     Dates: start: 20070101, end: 20080301
  2. SINGULAIR [Suspect]
     Indication: HYPERSENSITIVITY
     Dosage: 10 MG. DAILY
     Dates: start: 20070101, end: 20080301

REACTIONS (4)
  - GAIT DISTURBANCE [None]
  - MUSCLE SPASMS [None]
  - OEDEMA PERIPHERAL [None]
  - PAIN IN EXTREMITY [None]
